FAERS Safety Report 7083835-9 (Version None)
Quarter: 2010Q4

REPORT INFORMATION
  Report Type: 
  Country: None (occurrence: None)
  Receive Date: 20101025
  Receipt Date: 20101012
  Transmission Date: 20110411
  Serious: Yes (Death, Hospitalization)
  Sender: FDA-Public Use
  Company Number: 101626-2

PATIENT
  Age: 60 Year
  Sex: Male
  Weight: 89 kg

DRUGS (1)
  1. ETOPOSIDE [Suspect]
     Indication: NON-SMALL CELL LUNG CANCER STAGE III
     Dosage: 50MG/M2 IV DAYS 1-5 EVERY 4 WEEKS
     Dates: start: 20100419

REACTIONS (4)
  - FEBRILE NEUTROPENIA [None]
  - GENERAL PHYSICAL HEALTH DETERIORATION [None]
  - LUNG CONSOLIDATION [None]
  - PNEUMONIA [None]
